FAERS Safety Report 7342185-3 (Version None)
Quarter: 2011Q1

REPORT INFORMATION
  Report Type: 
  Country: None (occurrence: None)
  Receive Date: 20110309
  Receipt Date: 20110224
  Transmission Date: 20110831
  Serious: Yes (Other)
  Sender: FDA-Public Use
  Company Number: GB-MYLANLABS-2011S1003961

PATIENT
  Age: 36 Year
  Sex: Female

DRUGS (5)
  1. TOPIRAMATE [Concomitant]
     Indication: EPILEPSY
     Route: 065
  2. PHENYTOIN [Suspect]
     Indication: EPILEPSY
     Route: 065
  3. LACOSAMIDE [Interacting]
     Indication: EPILEPSY
     Dosage: DOSAGE AT ADR ONSET; INCREASED FROM AN UNKNOWN DOSAGE TO 100 MG/DAY
     Route: 065
  4. OXCARBAZEPINE [Interacting]
  5. OXCARBAZEPINE [Interacting]
     Indication: EPILEPSY
     Route: 065

REACTIONS (4)
  - DIPLOPIA [None]
  - BALANCE DISORDER [None]
  - NEUROTOXICITY [None]
  - DRUG INTERACTION [None]
